FAERS Safety Report 21045529 (Version 1)
Quarter: 2022Q3

REPORT INFORMATION
  Report Type: Spontaneous
  Country: FR (occurrence: FR)
  Receive Date: 20220706
  Receipt Date: 20220706
  Transmission Date: 20221027
  Serious: Yes (Other)
  Sender: FDA-Public Use
  Company Number: FR-CELLTRION INC.-2022FR010320

PATIENT

DRUGS (3)
  1. INFLIXIMAB [Suspect]
     Active Substance: INFLIXIMAB
     Indication: Crohn^s disease
     Dosage: 7.5 MG/KG, CYCLIC (EVERY 8 WEEKS)
  2. INFLIXIMAB [Suspect]
     Active Substance: INFLIXIMAB
     Dosage: 10 MG/KG EVERY 8 WEEKS
  3. DOXYCYCLINE [Concomitant]
     Active Substance: DOXYCYCLINE
     Indication: Orofacial granulomatosis
     Dosage: 200 MG, DAILY

REACTIONS (3)
  - Orofacial granulomatosis [Recovered/Resolved]
  - Crohn^s disease [Recovered/Resolved]
  - Overdose [Unknown]
